FAERS Safety Report 16679646 (Version 1)
Quarter: 2019Q3

REPORT INFORMATION
  Report Type: Spontaneous
  Country: DE (occurrence: DE)
  Receive Date: 20190807
  Receipt Date: 20190807
  Transmission Date: 20191004
  Serious: Yes (Hospitalization)
  Sender: FDA-Public Use
  Company Number: DE-BAYER-2019-145975

PATIENT
  Age: 48 Year
  Sex: Male

DRUGS (2)
  1. CORTISON [Concomitant]
     Active Substance: CORTISONE ACETATE
     Dosage: UNK, ONCE
     Route: 030
     Dates: start: 20171120, end: 20171120
  2. CIPROFLOXACIN. [Suspect]
     Active Substance: CIPROFLOXACIN
     Dosage: 500 MG
     Dates: end: 20171122

REACTIONS (2)
  - Pain in extremity [Unknown]
  - Immobile [Unknown]

NARRATIVE: CASE EVENT DATE: 20171122
